FAERS Safety Report 11752902 (Version 3)
Quarter: 2016Q2

REPORT INFORMATION
  Report Type: Report from Study
  Country: CA (occurrence: CA)
  Receive Date: 20151119
  Receipt Date: 20160523
  Transmission Date: 20160815
  Serious: Yes (Other)
  Sender: FDA-Public Use
  Company Number: CA-BEH-2015055885

PATIENT
  Age: 62 Year
  Sex: Female

DRUGS (9)
  1. SEREVENT DISKUS [Concomitant]
     Active Substance: SALMETEROL XINAFOATE
  2. SYNTHROID [Concomitant]
     Active Substance: LEVOTHYROXINE SODIUM
  3. PREVACID [Concomitant]
     Active Substance: LANSOPRAZOLE
  4. PREDNISONE. [Concomitant]
     Active Substance: PREDNISONE
  5. STATIN [Concomitant]
     Active Substance: UNSPECIFIED INGREDIENT
  6. HIZENTRA [Suspect]
     Active Substance: HUMAN IMMUNOGLOBULIN G
     Indication: SECONDARY IMMUNODEFICIENCY
     Dosage: 25ML; PUSH METHOD
     Route: 058
     Dates: start: 20151019
  7. ALVESCO [Concomitant]
     Active Substance: CICLESONIDE
  8. REACTINE [Concomitant]
     Active Substance: CETIRIZINE HYDROCHLORIDE
  9. LOSARTAN. [Concomitant]
     Active Substance: LOSARTAN

REACTIONS (12)
  - Bronchitis [Recovering/Resolving]
  - Viral infection [Not Recovered/Not Resolved]
  - Pain [Unknown]
  - Fatigue [Unknown]
  - Cough [Not Recovered/Not Resolved]
  - Productive cough [Not Recovered/Not Resolved]
  - Ill-defined disorder [Unknown]
  - Fatigue [Unknown]
  - Blood glucose decreased [Not Recovered/Not Resolved]
  - Malaise [Unknown]
  - Pain in extremity [Not Recovered/Not Resolved]
  - Pain [Not Recovered/Not Resolved]

NARRATIVE: CASE EVENT DATE: 201511
